FAERS Safety Report 7016872-0 (Version None)
Quarter: 2010Q3

REPORT INFORMATION
  Report Type: 
  Country: None (occurrence: None)
  Receive Date: 20100927
  Receipt Date: 20100914
  Transmission Date: 20110219
  Serious: Yes (Other)
  Sender: FDA-Public Use
  Company Number: US-AMGEN-KDL439776

PATIENT
  Sex: Female
  Weight: 65.8 kg

DRUGS (14)
  1. PROCRIT [Suspect]
     Indication: ANAEMIA
     Route: 058
  2. ACETAMINOPHEN/DEXTROMETHORPHAN HBR/PSEUDOEPHEDRINE HCL [Concomitant]
  3. RIBAVIRIN [Concomitant]
     Dates: start: 20100401
  4. AMITRIPTYLINE HCL [Concomitant]
  5. PEG-INTRON [Concomitant]
     Dates: start: 20100401
  6. ZANTAC [Concomitant]
  7. PREVACID [Concomitant]
  8. ZOLOFT [Concomitant]
     Dates: start: 20100901
  9. TRAZODONE HCL [Concomitant]
  10. NAPROXEN [Concomitant]
  11. TYLENOL [Concomitant]
  12. NYQUIL [Concomitant]
  13. MAALOX [Concomitant]
  14. LIDOCAINE HCL VISCOUS [Concomitant]

REACTIONS (14)
  - ABDOMINAL PAIN UPPER [None]
  - AMNESIA [None]
  - DEPRESSION [None]
  - DIARRHOEA [None]
  - DYSPNOEA [None]
  - HEADACHE [None]
  - MIGRAINE [None]
  - PAIN [None]
  - PYREXIA [None]
  - RESTLESS LEGS SYNDROME [None]
  - SLEEP DISORDER [None]
  - VISION BLURRED [None]
  - VISUAL ACUITY REDUCED [None]
  - VOMITING [None]
